FAERS Safety Report 25851901 (Version 1)
Quarter: 2025Q3

REPORT INFORMATION
  Report Type: Spontaneous
  Country: US (occurrence: None)
  Receive Date: 20250925
  Receipt Date: 20250925
  Transmission Date: 20251021
  Serious: Yes (Hospitalization, Other)
  Sender: FDA-CTU
  Company Number: None

PATIENT
  Age: 48 Year
  Sex: Male
  Weight: 89.2 kg

DRUGS (4)
  1. BREYANZI [Suspect]
     Active Substance: LISOCABTAGENE MARALEUCEL
     Indication: Diffuse large B-cell lymphoma
     Route: 042
     Dates: start: 20250821, end: 20250821
  2. TOCILIZUMAB [Suspect]
     Active Substance: TOCILIZUMAB
  3. ANAKINRA [Suspect]
     Active Substance: ANAKINRA
  4. DEXAMETHASONE [Suspect]
     Active Substance: DEXAMETHASONE

REACTIONS (7)
  - Immune effector cell-associated neurotoxicity syndrome [None]
  - Dysgraphia [None]
  - Depressed level of consciousness [None]
  - Hypothermia [None]
  - Hypotension [None]
  - Malignant neoplasm progression [None]
  - Diffuse large B-cell lymphoma [None]

NARRATIVE: CASE EVENT DATE: 20250904
